FAERS Safety Report 24842875 (Version 2)
Quarter: 2025Q3

REPORT INFORMATION
  Report Type: Report from Study
  Country: US (occurrence: US)
  Receive Date: 20250115
  Receipt Date: 20250911
  Transmission Date: 20251020
  Serious: Yes (Hospitalization, Other)
  Sender: ESTEVE
  Company Number: US-ORG100014127-2023000793

PATIENT
  Age: 39 Year

DRUGS (15)
  1. LYSODREN [Suspect]
     Active Substance: MITOTANE
     Indication: Adrenocortical carcinoma
     Dates: start: 20230623
  2. LYSODREN [Suspect]
     Active Substance: MITOTANE
     Dates: start: 20230706
  3. A-HYDROCORT [Concomitant]
     Active Substance: HYDROCORTISONE SODIUM SUCCINATE
  4. metoprol tart [Concomitant]
  5. Triamcinolon [Concomitant]
  6. GABAPENTIN [Concomitant]
     Active Substance: GABAPENTIN
  7. AMLODIPINE [Concomitant]
     Active Substance: AMLODIPINE BESYLATE
  8. ATENOLOL [Concomitant]
     Active Substance: ATENOLOL
  9. PRAZOSIN HYDROCHLORIDE [Concomitant]
     Active Substance: PRAZOSIN HYDROCHLORIDE
  10. Spironolact  25 mg/50 mg [Concomitant]
  11. LYSODREN [Suspect]
     Active Substance: MITOTANE
  12. LYSODREN [Suspect]
     Active Substance: MITOTANE
     Dates: start: 20240320
  13. LYSODREN [Suspect]
     Active Substance: MITOTANE
     Dates: end: 20240325
  14. LYSODREN [Suspect]
     Active Substance: MITOTANE
  15. LYSODREN [Suspect]
     Active Substance: MITOTANE

REACTIONS (7)
  - Adrenocortical insufficiency acute [Recovering/Resolving]
  - Product dose omission issue [Unknown]
  - Pruritus [Not Recovered/Not Resolved]
  - Nausea [Not Recovered/Not Resolved]
  - Fatigue [Not Recovered/Not Resolved]
  - Rash [Recovered/Resolved]
  - Insomnia [Unknown]

NARRATIVE: CASE EVENT DATE: 20230701
